FAERS Safety Report 5207958-1 (Version None)
Quarter: 2007Q1

REPORT INFORMATION
  Report Type: 
  Country: None (occurrence: None)
  Receive Date: 20070115
  Receipt Date: 20070110
  Transmission Date: 20070707
  Serious: Yes (Hospitalization)
  Sender: FDA-Public Use
  Company Number: US-ELI_LILLY_AND_COMPANY-US200609003732

PATIENT
  Age: 31 Year
  Sex: Female
  Weight: 65.759 kg

DRUGS (4)
  1. ZYPREXA [Suspect]
     Indication: DEPRESSION
     Dosage: UNK, UNKNOWN
     Dates: start: 20020101, end: 20030101
  2. CHLORPROMAZINE [Concomitant]
     Dates: start: 20020101
  3. BUPROPION HCL [Concomitant]
     Dates: start: 20020101
  4. PREDNISONE TAB [Concomitant]
     Dates: start: 20030101

REACTIONS (3)
  - CARDIAC DISORDER [None]
  - DIABETES MELLITUS [None]
  - HYPERTENSION [None]
